FAERS Safety Report 10210710 (Version 2)
Quarter: 2014Q2

REPORT INFORMATION
  Report Type: Report from Study
  Country: US (occurrence: US)
  Receive Date: 20140602
  Receipt Date: 20140620
  Transmission Date: 20141212
  Serious: Yes (Other)
  Sender: FDA-Public Use
  Company Number: US-ACTELION-A-NJ2014-099514

PATIENT
  Age: 75 Year
  Sex: Female

DRUGS (2)
  1. MACITENTAN [Suspect]
     Indication: PULMONARY ARTERIAL HYPERTENSION
     Dosage: 10 MG, QD
     Route: 048
     Dates: start: 20131224
  2. COUMADIN [Concomitant]
     Dosage: UNK
     Dates: start: 20140428

REACTIONS (2)
  - Ventricular fibrillation [Not Recovered/Not Resolved]
  - Fluid retention [Not Recovered/Not Resolved]
